FAERS Safety Report 13702444 (Version 2)
Quarter: 2017Q3

REPORT INFORMATION
  Report Type: Spontaneous
  Country: IN (occurrence: IN)
  Receive Date: 20170629
  Receipt Date: 20170713
  Transmission Date: 20171127
  Serious: Yes (Death, Hospitalization)
  Sender: FDA-Public Use
  Company Number: IN-SA-2017SA114647

PATIENT
  Sex: Male

DRUGS (1)
  1. CAPRELSA [Suspect]
     Active Substance: VANDETANIB
     Indication: MEDULLARY THYROID CANCER
     Route: 048

REACTIONS (5)
  - Fistula [Fatal]
  - Diarrhoea [Fatal]
  - Generalised oedema [Fatal]
  - Lung infection [Unknown]
  - Infectious colitis [Unknown]
